FAERS Safety Report 23772358 (Version 6)
Quarter: 2025Q1

REPORT INFORMATION
  Report Type: Report from Study
  Country: CO (occurrence: CO)
  Receive Date: 20240423
  Receipt Date: 20250102
  Transmission Date: 20250409
  Serious: Yes (Other)
  Sender: ROCHE
  Company Number: CO-002147023-NVSC2024CO078324

PATIENT
  Age: 37 Year
  Sex: Female
  Weight: 84 kg

DRUGS (2)
  1. XOLAIR [Suspect]
     Active Substance: OMALIZUMAB
     Indication: Chronic spontaneous urticaria
     Dosage: 300 MG, QMO
     Route: 058
     Dates: start: 20240408
  2. XOLAIR [Suspect]
     Active Substance: OMALIZUMAB
     Route: 065
     Dates: start: 202404, end: 20240606

REACTIONS (15)
  - Choking [Unknown]
  - Hypothyroidism [Unknown]
  - Headache [Recovering/Resolving]
  - Muscle spasms [Recovering/Resolving]
  - Joint swelling [Recovering/Resolving]
  - Hypersensitivity [Recovering/Resolving]
  - Nasal discomfort [Unknown]
  - Vaccination site pain [Unknown]
  - Pruritus [Unknown]
  - Condition aggravated [Unknown]
  - Glucose tolerance impaired [Unknown]
  - Endometriosis [Unknown]
  - Urticaria [Unknown]
  - Tracheal stenosis [Unknown]
  - Pharyngeal swelling [Unknown]
